FAERS Safety Report 8875993 (Version 1)
Quarter: 2012Q4

REPORT INFORMATION
  Report Type: 
  Country: US (occurrence: US)
  Receive Date: 20121023
  Receipt Date: 20121023
  Transmission Date: 20130627
  Serious: Yes (Death, Hospitalization, Other)
  Sender: FDA-Public Use
  Company Number: US-ROXANE LABORATORIES, INC.-2012-RO-02035RO

PATIENT
  Age: 55 Year
  Sex: Female

DRUGS (7)
  1. DEXAMETHASONE [Suspect]
     Indication: METASTASES TO CENTRAL NERVOUS SYSTEM
     Dosage: 8 mg
     Route: 048
  2. DEXAMETHASONE [Suspect]
     Route: 048
  3. LORAZEPAM [Suspect]
     Indication: AGITATION
  4. PREDNISONE [Suspect]
     Indication: CHEMOTHERAPY
  5. VINORELBINE [Suspect]
     Indication: METASTASES TO CENTRAL NERVOUS SYSTEM
  6. TRASTUZUMAB [Suspect]
     Indication: METASTASES TO CENTRAL NERVOUS SYSTEM
  7. OLANZAPINE [Suspect]
     Indication: MANIA
     Dosage: 5 mg

REACTIONS (5)
  - Death [Fatal]
  - Mania [Recovered/Resolved]
  - Sedation [Unknown]
  - Insomnia [Unknown]
  - Tachyphrenia [Unknown]
